FAERS Safety Report 21847999 (Version 1)
Quarter: 2023Q1

REPORT INFORMATION
  Report Type: Spontaneous
  Country: NL (occurrence: NL)
  Receive Date: 20230111
  Receipt Date: 20230111
  Transmission Date: 20230418
  Serious: Yes (Other)
  Sender: FDA-Public Use
  Company Number: None

PATIENT
  Sex: Male
  Weight: 65 kg

DRUGS (13)
  1. LYRICA [Suspect]
     Active Substance: PREGABALIN
     Indication: Neuralgia
     Dosage: 75 MILLIGRAM, BID, 2 X PER DAY 1 PIECE
     Route: 065
     Dates: start: 20111101
  2. LYRICA [Suspect]
     Active Substance: PREGABALIN
     Dosage: INCREASE DOSE TO 1X PER DAY 150MG+1X PER DAY 75MG
     Route: 065
     Dates: start: 20111108
  3. LYRICA [Suspect]
     Active Substance: PREGABALIN
     Dosage: 150 MILLIGRAM, BID, 2DD 150MG
     Route: 065
     Dates: start: 20111115
  4. LYRICA [Suspect]
     Active Substance: PREGABALIN
     Dosage: 1 DOSAGE FORM, BID, 2 X 150MG/DAY+1 X 75MG/DAY
     Route: 065
     Dates: start: 20111122
  5. LYRICA [Suspect]
     Active Substance: PREGABALIN
     Dosage: 150 MILLIGRAM, Q8H, 3DD 150MG
     Route: 065
     Dates: start: 20111129
  6. CEFUROXIME [Concomitant]
     Active Substance: CEFUROXIME
     Dosage: POWDER INJECTION FLUID, 750 MG (MILLIGRAMS)
     Route: 065
  7. PREDNISOLONE [Concomitant]
     Active Substance: PREDNISOLONE
     Dosage: DRANK, 5 MG/ML (MILLIGRAM PER MILLILITRE)
     Route: 065
  8. VALACYCLOVIR HYDROCHLORIDE [Concomitant]
     Active Substance: VALACYCLOVIR HYDROCHLORIDE
     Dosage: 500 MILLIGRAM, TABLET, 500 MG (MILLIGRAM)
     Route: 065
  9. NADROPARIN CALCIUM [Concomitant]
     Active Substance: NADROPARIN CALCIUM
     Dosage: UNKNOWN
     Route: 065
  10. AMITRIPTYLINE [Concomitant]
     Active Substance: AMITRIPTYLINE
     Dosage: 50 MILLIGRAM, TABLET, 50 MG (MILLIGRAM)
     Route: 065
  11. GENTAMICIN [Concomitant]
     Active Substance: GENTAMICIN
     Dosage: 40 MILLIGRAM PER MILLILITRE, INJECTION FLUID
     Route: 065
  12. TRIAMCINOLONE ACETONIDE [Concomitant]
     Active Substance: TRIAMCINOLONE ACETONIDE
     Dosage: 1 MILLIGRAM PER GRAM, CREAM
     Route: 065
  13. CLOBETASOL [Concomitant]
     Active Substance: CLOBETASOL
     Dosage: CREME, 0,5 MG/G (MILLIGRAM PER GRAM)
     Route: 065

REACTIONS (1)
  - Hypothyroidism [Unknown]
